APPROVED DRUG PRODUCT: CHLORHEXIDINE GLUCONATE
Active Ingredient: CHLORHEXIDINE GLUCONATE
Strength: 0.75%
Dosage Form/Route: SOLUTION;TOPICAL
Application: N020111 | Product #001
Applicant: BAJAJ MEDICAL LLC
Approved: Sep 11, 1997 | RLD: No | RS: No | Type: OTC